FAERS Safety Report 8313773-2 (Version None)
Quarter: 2012Q2

REPORT INFORMATION
  Report Type: 
  Country: None (occurrence: None)
  Receive Date: 20120426
  Receipt Date: 20070925
  Transmission Date: 20120825
  Serious: Yes (Other)
  Sender: FDA-Public Use
  Company Number: US-TEVA-US021328

PATIENT
  Sex: Female

DRUGS (8)
  1. VESICARE [Suspect]
     Indication: BLADDER DISORDER
     Route: 065
     Dates: end: 20070301
  2. BACLOFEN [Suspect]
     Indication: MUSCLE SPASMS
     Route: 065
     Dates: end: 20070301
  3. CELEXA [Suspect]
     Indication: DEPRESSION
     Route: 065
     Dates: end: 20070301
  4. REBIF [Suspect]
     Indication: MULTIPLE SCLEROSIS
     Dosage: THREE TIMES PER WEEK
     Route: 058
     Dates: start: 20060314, end: 20070301
  5. SEROQUEL [Suspect]
     Indication: INSOMNIA
     Route: 065
     Dates: end: 20070301
  6. MINOCYCLINE HCL [Suspect]
     Indication: HIDRADENITIS
     Route: 065
     Dates: end: 20070301
  7. RELPAX [Suspect]
     Indication: MIGRAINE
     Route: 065
     Dates: end: 20070301
  8. PROVIGIL [Suspect]
     Indication: FATIGUE
     Route: 048
     Dates: end: 20070301

REACTIONS (2)
  - MATERNAL EXPOSURE DURING PREGNANCY [None]
  - ABORTION SPONTANEOUS [None]
